FAERS Safety Report 7095894-8 (Version None)
Quarter: 2010Q4

REPORT INFORMATION
  Report Type: 
  Country: None (occurrence: None)
  Receive Date: 20101109
  Receipt Date: 20101109
  Transmission Date: 20110411
  Serious: Yes (Hospitalization)
  Sender: FDA-Public Use
  Company Number: None

PATIENT
  Age: 63 Year
  Sex: Female

DRUGS (11)
  1. FENTANYL-100 [Suspect]
     Indication: PAIN
     Dosage: 12 MCG Q3DAYS TOP
     Route: 061
  2. PERCOCET [Concomitant]
  3. COLACE [Concomitant]
  4. DEXAMETHASONE [Concomitant]
  5. LANTUS [Concomitant]
  6. NORVASC [Concomitant]
  7. LASIX [Concomitant]
  8. ARIMIDEX [Concomitant]
  9. ASPIRIN [Concomitant]
  10. FEMARA [Concomitant]
  11. ... [Concomitant]

REACTIONS (1)
  - MENINGITIS ASEPTIC [None]
